FAERS Safety Report 11094896 (Version 1)
Quarter: 2015Q2

REPORT INFORMATION
  Report Type: Spontaneous
  Country: US (occurrence: US)
  Receive Date: 20150506
  Receipt Date: 20150506
  Transmission Date: 20150821
  Serious: No
  Sender: FDA-Public Use
  Company Number: US-BAYER-2015-181389

PATIENT
  Age: 68 Year
  Sex: Female

DRUGS (1)
  1. MIRALAX [Suspect]
     Active Substance: POLYETHYLENE GLYCOL 3350
     Indication: CONSTIPATION
     Dosage: 1 UNIT, ONCE
     Route: 048
     Dates: start: 20150420, end: 20150420

REACTIONS (2)
  - Dysgeusia [None]
  - Nausea [Recovered/Resolved]

NARRATIVE: CASE EVENT DATE: 20150420
